FAERS Safety Report 6941222-5 (Version None)
Quarter: 2010Q3

REPORT INFORMATION
  Report Type: 
  Country: None (occurrence: None)
  Receive Date: 20100825
  Receipt Date: 20100726
  Transmission Date: 20110219
  Serious: No
  Sender: FDA-Public Use
  Company Number: US-BRISTOL-MYERS SQUIBB COMPANY-15181126

PATIENT
  Age: 87 Year

DRUGS (4)
  1. ONGLYZA [Suspect]
     Dosage: STARTED ON MARCH-APR2010
     Dates: start: 20100101
  2. METFORMIN HCL [Concomitant]
  3. GLYBURIDE [Concomitant]
  4. EXFORGE [Concomitant]

REACTIONS (2)
  - ORAL HERPES [None]
  - SWELLING [None]
